FAERS Safety Report 5449929-6 (Version None)
Quarter: 2007Q3

REPORT INFORMATION
  Report Type: 
  Country: None (occurrence: None)
  Receive Date: 20070910
  Receipt Date: 20070910
  Transmission Date: 20080115
  Serious: Yes (Death)
  Sender: FDA-Public Use
  Company Number: None

PATIENT
  Sex: Female
  Weight: 73.4827 kg

DRUGS (7)
  1. ZOMETA [Suspect]
     Indication: OSTEOPOROSIS
     Dosage: 4MG Q 90 DAYS IV
     Route: 042
     Dates: start: 20070507
  2. ZOMETA [Suspect]
     Indication: OSTEOPOROSIS
     Dosage: 4MG Q 90 DAYS IV
     Route: 042
     Dates: start: 20070730
  3. PAXIL [Concomitant]
  4. PEPCID [Concomitant]
  5. POTASSIUM CHLORIDE [Concomitant]
  6. CALCIUM [Concomitant]
  7. DECADRON [Concomitant]

REACTIONS (1)
  - DISEASE PROGRESSION [None]
